FAERS Safety Report 8746124 (Version 3)
Quarter: 2012Q4

REPORT INFORMATION
  Report Type: 
  Country: US (occurrence: US)
  Receive Date: 20120827
  Receipt Date: 20121207
  Transmission Date: 20130627
  Serious: Yes (Other)
  Sender: FDA-Public Use
  Company Number: PHEH2012US016551

PATIENT
  Age: 48 Year
  Sex: Female

DRUGS (1)
  1. GILENYA [Suspect]
     Indication: MULTIPLE SCLEROSIS
     Dosage: 0.5 mg, QD
     Route: 048
     Dates: start: 20120821, end: 20120821

REACTIONS (10)
  - Lip swelling [Recovered/Resolved]
  - Erythema [Recovered/Resolved]
  - Rash [Not Recovered/Not Resolved]
  - Sinus bradycardia [Recovered/Resolved]
  - Pruritus [Recovered/Resolved]
  - Micturition urgency [Recovered/Resolved]
  - Blood pressure abnormal [Not Recovered/Not Resolved]
  - Heart rate irregular [Not Recovered/Not Resolved]
  - Sluggishness [Recovered/Resolved]
  - Dizziness [Recovered/Resolved]
